FAERS Safety Report 17871323 (Version 1)
Quarter: 2020Q2

REPORT INFORMATION
  Report Type: Spontaneous
  Country: FR (occurrence: FR)
  Receive Date: 20200608
  Receipt Date: 20200608
  Transmission Date: 20200714
  Serious: Yes (Hospitalization, Other)
  Sender: FDA-Public Use
  Company Number: FR-GALDERMA-FR2020026492

PATIENT
  Age: 78 Year
  Sex: Female

DRUGS (2)
  1. ERY [Concomitant]
     Active Substance: ERYTHROMYCIN
     Indication: ROSACEA
     Dosage: 500 MG
     Route: 048
     Dates: start: 20190502, end: 20190518
  2. ROZEX (METRONIDAZOLE) [Suspect]
     Active Substance: METRONIDAZOLE
     Indication: ROSACEA
     Dosage: 0.75%
     Route: 003
     Dates: start: 20190502, end: 20190518

REACTIONS (3)
  - Abdominal pain upper [Recovered/Resolved]
  - Liver injury [Recovered/Resolved]
  - Asthenia [Recovered/Resolved]

NARRATIVE: CASE EVENT DATE: 20190513
